FAERS Safety Report 7517913-4 (Version None)
Quarter: 2011Q2

REPORT INFORMATION
  Report Type: 
  Country: None (occurrence: None)
  Receive Date: 20110523
  Receipt Date: 20110510
  Transmission Date: 20111010
  Serious: Yes (Death)
  Sender: FDA-Public Use
  Company Number: ACO_23210_2011

PATIENT
  Age: 39 Year
  Sex: Female
  Weight: 72.6 kg

DRUGS (5)
  1. AMPYRA [Suspect]
     Indication: GAIT DISTURBANCE
     Dosage: 10 MG, Q 12 HRS
     Dates: start: 20101004, end: 20110303
  2. PERCOCET [Concomitant]
  3. BACLOFEN [Concomitant]
  4. DIAZEPAM [Concomitant]
  5. MODAFINIL [Concomitant]

REACTIONS (1)
  - DEATH [None]
